FAERS Safety Report 6382200-7 (Version None)
Quarter: 2009Q3

REPORT INFORMATION
  Report Type: 
  Country: None (occurrence: None)
  Receive Date: 20090930
  Receipt Date: 20090924
  Transmission Date: 20100115
  Serious: Yes (Death, Other)
  Sender: FDA-Public Use
  Company Number: AT-CELGENEUS-009-21880-09092049

PATIENT
  Sex: Male
  Weight: 55.5 kg

DRUGS (1)
  1. REVLIMID [Suspect]
     Route: 048

REACTIONS (2)
  - INFECTION [None]
  - MYELODYSPLASTIC SYNDROME [None]
